FAERS Safety Report 20688721 (Version 3)
Quarter: 2023Q1

REPORT INFORMATION
  Report Type: Spontaneous
  Country: DE (occurrence: DE)
  Receive Date: 20220408
  Receipt Date: 20230227
  Transmission Date: 20230418
  Serious: Yes (Other)
  Sender: FDA-Public Use
  Company Number: DE-VIVAPROD-2022MSNLIT00346

PATIENT

DRUGS (4)
  1. DEFERASIROX [Suspect]
     Active Substance: DEFERASIROX
     Indication: Iron overload
     Route: 065
  2. DEFERASIROX [Suspect]
     Active Substance: DEFERASIROX
     Indication: Anaemia macrocytic
     Route: 065
  3. DEFERASIROX [Suspect]
     Active Substance: DEFERASIROX
     Indication: Anaemia
     Route: 048
  4. DEFERASIROX [Suspect]
     Active Substance: DEFERASIROX
     Indication: Chelation therapy
     Route: 065

REACTIONS (6)
  - Cholestasis [Recovered/Resolved]
  - Coombs negative haemolytic anaemia [Recovered/Resolved]
  - Haemolysis [Recovered/Resolved]
  - Erythropoiesis abnormal [Unknown]
  - Abdominal discomfort [Recovered/Resolved]
  - Cholelithiasis [Recovered/Resolved]
